FAERS Safety Report 20771485 (Version 1)
Quarter: 2022Q2

REPORT INFORMATION
  Report Type: Spontaneous
  Country: BE (occurrence: BE)
  Receive Date: 20220430
  Receipt Date: 20220430
  Transmission Date: 20220721
  Serious: Yes (Hospitalization, Other)
  Sender: FDA-Public Use
  Company Number: BE-CELLTRION INC.-2022BE005020

PATIENT

DRUGS (15)
  1. RITUXIMAB [Suspect]
     Active Substance: RITUXIMAB
     Indication: Diffuse large B-cell lymphoma stage IV
     Dosage: UNK
     Route: 065
  2. RITUXIMAB [Suspect]
     Active Substance: RITUXIMAB
     Dosage: THIRD CYCLE (OCTOBER 16TH)
  3. RITUXIMAB [Suspect]
     Active Substance: RITUXIMAB
     Dosage: FOURTH CYCLE (NOVEMBER 20TH)
  4. CYCLOPHOSPHAMIDE [Suspect]
     Active Substance: CYCLOPHOSPHAMIDE
     Indication: Diffuse large B-cell lymphoma stage IV
     Dosage: UNK
     Route: 065
  5. CYCLOPHOSPHAMIDE [Suspect]
     Active Substance: CYCLOPHOSPHAMIDE
     Dosage: THIRD CYCLE (OCTOBER 16TH)
  6. CYCLOPHOSPHAMIDE [Suspect]
     Active Substance: CYCLOPHOSPHAMIDE
     Dosage: FOURTH CYCLE (NOVEMBER 20TH)
  7. PREDNISOLONE [Suspect]
     Active Substance: PREDNISOLONE
     Indication: Diffuse large B-cell lymphoma stage IV
     Dosage: UNK
     Route: 065
  8. PREDNISOLONE [Suspect]
     Active Substance: PREDNISOLONE
     Dosage: THIRD CYCLE (OCTOBER 16TH)
  9. PREDNISOLONE [Suspect]
     Active Substance: PREDNISOLONE
     Dosage: FOURTH CYCLE (NOVEMBER 20TH)
  10. DOXORUBICIN [Suspect]
     Active Substance: DOXORUBICIN
     Indication: Diffuse large B-cell lymphoma stage IV
     Dosage: UNK
     Route: 065
  11. DOXORUBICIN [Suspect]
     Active Substance: DOXORUBICIN
     Dosage: THIRD CYCLE (OCTOBER 16TH)
  12. DOXORUBICIN [Suspect]
     Active Substance: DOXORUBICIN
     Dosage: FOURTH CYCLE (NOVEMBER 20TH)
  13. VINCRISTINE [Suspect]
     Active Substance: VINCRISTINE
     Indication: Diffuse large B-cell lymphoma stage IV
     Dosage: UNK
     Route: 065
  14. VINCRISTINE [Suspect]
     Active Substance: VINCRISTINE
     Dosage: THIRD CYCLE (OCTOBER 16TH)
  15. VINCRISTINE [Suspect]
     Active Substance: VINCRISTINE
     Dosage: FOURTH CYCLE (NOVEMBER 20TH)

REACTIONS (4)
  - COVID-19 pneumonia [Unknown]
  - Acute respiratory distress syndrome [Unknown]
  - Superinfection bacterial [Unknown]
  - Treatment delayed [Unknown]
